FAERS Safety Report 19602202 (Version 2)
Quarter: 2022Q2

REPORT INFORMATION
  Report Type: Spontaneous
  Country: CA (occurrence: None)
  Receive Date: 20210723
  Receipt Date: 20220405
  Transmission Date: 20220721
  Serious: Yes (Hospitalization, Other)
  Sender: FDA-Public Use
  Company Number: 2021A624839

PATIENT
  Age: 48 Year
  Sex: Male
  Weight: 100 kg

DRUGS (4)
  1. DAPAGLIFLOZIN [Suspect]
     Active Substance: DAPAGLIFLOZIN
     Indication: Type 2 diabetes mellitus
     Route: 048
     Dates: start: 20210310, end: 20210316
  2. ASPIRIN [Concomitant]
     Active Substance: ASPIRIN
     Indication: Pain
     Dosage: 650 MG ORAL Q3H
  3. ADALAT XL SRT [Concomitant]
     Dosage: 30 MG ORAL DAILY
  4. LINAGLIPTIN [Concomitant]
     Active Substance: LINAGLIPTIN
     Dosage: 5 MG ORAL DAILY

REACTIONS (6)
  - Abdominal pain [Recovering/Resolving]
  - Appendicitis [Recovering/Resolving]
  - Decreased appetite [Recovering/Resolving]
  - Pain [Recovering/Resolving]
  - Vomiting [Recovering/Resolving]
  - Diabetic ketoacidosis [Recovering/Resolving]
